FAERS Safety Report 8588134-1 (Version None)
Quarter: 2012Q3

REPORT INFORMATION
  Report Type: 
  Country: None (occurrence: None)
  Receive Date: 20120813
  Receipt Date: 20120806
  Transmission Date: 20120928
  Serious: Yes (Other)
  Sender: FDA-Public Use
  Company Number: US-009507513-1208USA003551

PATIENT

DRUGS (2)
  1. REBETOL [Suspect]
     Indication: HEPATITIS C
     Dosage: UNK
     Dates: start: 20010928, end: 20020927
  2. INTRON A [Suspect]
     Indication: HEPATITIS C
     Dosage: UNK UNK, Q3W
     Dates: start: 20010928, end: 20020927

REACTIONS (8)
  - SOMNOLENCE [None]
  - DRUG INEFFECTIVE [None]
  - ULCER [None]
  - BLOOD POTASSIUM DECREASED [None]
  - PAIN IN EXTREMITY [None]
  - VOMITING [None]
  - DIARRHOEA [None]
  - DEHYDRATION [None]
